FAERS Safety Report 13415764 (Version 4)
Quarter: 2017Q3

REPORT INFORMATION
  Report Type: Report from Study
  Country: US (occurrence: US)
  Receive Date: 20170407
  Receipt Date: 20170828
  Transmission Date: 20171127
  Serious: Yes (Hospitalization, Other)
  Sender: FDA-Public Use
  Company Number: US-BRISTOL-MYERS SQUIBB COMPANY-BMS-2017-027346

PATIENT
  Age: 64 Year
  Sex: Female
  Weight: 93 kg

DRUGS (17)
  1. IPILIMUMAB [Suspect]
     Active Substance: IPILIMUMAB
     Indication: PRODUCT USED FOR UNKNOWN INDICATION
     Dosage: 1 DF=285, Q3WK
     Route: 065
     Dates: start: 20170125, end: 20170125
  2. AMLODIPIN                          /00972401/ [Concomitant]
     Active Substance: AMLODIPINE BESYLATE
     Indication: HYPERTENSION
     Dosage: 5 MG, QD
     Route: 048
     Dates: start: 20161230
  3. IPILIMUMAB [Suspect]
     Active Substance: IPILIMUMAB
     Indication: PRODUCT USED FOR UNKNOWN INDICATION
     Dosage: 1 DF=255, Q3WK
     Route: 065
     Dates: start: 20161215, end: 20161215
  4. CALCIUM [Concomitant]
     Active Substance: CALCIUM
     Indication: ADVERSE EVENT
     Dosage: UNK, QD
     Route: 048
     Dates: start: 20160728
  5. NIVOLUMAB [Suspect]
     Active Substance: NIVOLUMAB
     Indication: MALIGNANT MELANOMA
     Dosage: 1 DF=85,Q3WK
     Route: 065
     Dates: start: 20161215, end: 20161215
  6. NIVOLUMAB [Suspect]
     Active Substance: NIVOLUMAB
     Indication: PRODUCT USED FOR UNKNOWN INDICATION
     Dosage: 1 DF=95,Q3WK
     Route: 065
     Dates: start: 20170125, end: 20170125
  7. IPILIMUMAB [Suspect]
     Active Substance: IPILIMUMAB
     Indication: PRODUCT USED FOR UNKNOWN INDICATION
     Dosage: 1 DF=285, Q3WK
     Route: 065
     Dates: start: 20170105, end: 20170105
  8. METAMIZOL                          /06276702/ [Concomitant]
     Active Substance: METAMIZOLE
     Indication: PAIN
     Dosage: 1 DF, PRN
     Route: 048
     Dates: start: 20161230
  9. NALOXON [Concomitant]
     Active Substance: NALOXONE HYDROCHLORIDE
     Indication: PAIN
     Dosage: 8 MG, QD
     Route: 048
     Dates: start: 20161230
  10. PANTOPRAZOL [Concomitant]
     Active Substance: PANTOPRAZOLE SODIUM
     Indication: GASTRIC DISORDER
     Dosage: 40 MG, QD
     Route: 048
     Dates: start: 20161230
  11. TOREM COR [Concomitant]
     Indication: HYPERTENSION
     Dosage: 5 MG, QD
     Route: 048
     Dates: start: 20161230
  12. MAGNESIUM VERLA                    /00648601/ [Concomitant]
     Active Substance: MAGNESIUM
     Indication: ADVERSE EVENT
     Dosage: 1 DF, QD
     Route: 048
     Dates: start: 20161230
  13. NIVOLUMAB [Suspect]
     Active Substance: NIVOLUMAB
     Indication: LUNG NEOPLASM MALIGNANT
     Dosage: 1 DF=95,Q3WK
     Route: 065
     Dates: start: 20170105, end: 20170105
  14. VALSARTAN. [Concomitant]
     Active Substance: VALSARTAN
     Indication: HYPERTENSION
     Dosage: 240 MG, QD
     Route: 048
     Dates: start: 20161230
  15. HYDROCHLOROTHIAZIDE. [Concomitant]
     Active Substance: HYDROCHLOROTHIAZIDE
     Indication: HYPERTENSION
     Dosage: 1.25 MG, QD
     Route: 048
     Dates: start: 20161230
  16. DEXAMETHASON                       /00016001/ [Concomitant]
     Active Substance: DEXAMETHASONE
     Indication: METASTASES TO CENTRAL NERVOUS SYSTEM
     Dosage: 4 MG, QD
     Route: 048
     Dates: start: 20161230
  17. TILIDIN [Concomitant]
     Active Substance: NALOXONE HYDROCHLORIDE\TILIDINE HYDROCHLORIDE
     Indication: PAIN
     Dosage: 100 MG, QD
     Route: 048
     Dates: start: 20161230

REACTIONS (6)
  - Colitis [Recovered/Resolved]
  - Gastritis [Unknown]
  - Haemorrhagic anaemia [Unknown]
  - Prerenal failure [Unknown]
  - Hyponatraemia [Unknown]
  - Off label use [Unknown]

NARRATIVE: CASE EVENT DATE: 20170215
